FAERS Safety Report 4505131-3 (Version None)
Quarter: 2004Q4

REPORT INFORMATION
  Report Type: 
  Country: None (occurrence: None)
  Receive Date: 20041117
  Receipt Date: 20041117
  Transmission Date: 20050328
  Serious: Yes (Hospitalization)
  Sender: FDA-Public Use
  Company Number: None

PATIENT
  Age: 70 Year
  Sex: Male

DRUGS (8)
  1. WARFARIN SODIUM [Suspect]
     Indication: HEART VALVE REPLACEMENT
     Dosage: 7.5 MG QD
     Dates: start: 19980430
  2. BACLOFEN [Concomitant]
  3. ROFECOXIB [Concomitant]
  4. ZOCOR [Concomitant]
  5. METOPROLOL [Concomitant]
  6. FESO4 [Concomitant]
  7. LORATADINE [Concomitant]
  8. FUROSEMIDE [Concomitant]

REACTIONS (1)
  - INTRACRANIAL HAEMATOMA [None]
